FAERS Safety Report 8291668 (Version 3)
Quarter: 2013Q2

REPORT INFORMATION
  Report Type: Report from Study
  Country: AR (occurrence: AR)
  Receive Date: 20111214
  Receipt Date: 20130404
  Transmission Date: 20140414
  Serious: Yes (Other)
  Sender: FDA-Public Use
  Company Number: AR-ABBOTT-11P-007-0882677-00

PATIENT
  Age: 54 Year
  Sex: Female

DRUGS (2)
  1. HUMIRA [Suspect]
     Indication: RHEUMATOID ARTHRITIS
     Route: 058
     Dates: start: 20110204
  2. MTX [Concomitant]
     Indication: RHEUMATOID ARTHRITIS

REACTIONS (3)
  - Ascites [Recovered/Resolved]
  - Pyrexia [Not Recovered/Not Resolved]
  - Device related infection [Recovering/Resolving]
